FAERS Safety Report 24985099 (Version 2)
Quarter: 2025Q3

REPORT INFORMATION
  Report Type: Spontaneous
  Country: US (occurrence: US)
  Receive Date: 20250219
  Receipt Date: 20250730
  Transmission Date: 20251021
  Serious: No
  Sender: PADAGIS
  Company Number: US-PADAGIS-2025PAD00170

PATIENT

DRUGS (6)
  1. IMIQUIMOD [Suspect]
     Active Substance: IMIQUIMOD
     Indication: Vitiligo
     Route: 065
  2. DESONIDE [Suspect]
     Active Substance: DESONIDE
     Indication: Vitiligo
     Route: 065
  3. CLOBETASOL [Suspect]
     Active Substance: CLOBETASOL
     Indication: Vitiligo
     Route: 065
  4. CLOBETASOL [Suspect]
     Active Substance: CLOBETASOL
     Route: 065
  5. CLOBETASOL [Suspect]
     Active Substance: CLOBETASOL
     Route: 065
  6. RUXOLITINIB [Suspect]
     Active Substance: RUXOLITINIB
     Indication: Vitiligo
     Route: 065

REACTIONS (2)
  - Drug ineffective [Unknown]
  - Product use in unapproved indication [Unknown]
